FAERS Safety Report 10251610 (Version 1)
Quarter: 2014Q2

REPORT INFORMATION
  Report Type: Spontaneous
  Country: CN (occurrence: CN)
  Receive Date: 20140623
  Receipt Date: 20140623
  Transmission Date: 20141212
  Serious: Yes (Other)
  Sender: FDA-Public Use
  Company Number: CN-ROCHE-1421316

PATIENT
  Age: 47 Year
  Sex: Male
  Weight: 47 kg

DRUGS (14)
  1. AVASTIN [Suspect]
     Indication: COLON CANCER
     Route: 041
     Dates: start: 20120928, end: 20121208
  2. AVASTIN [Suspect]
     Route: 041
     Dates: start: 20121222, end: 20130422
  3. AVASTIN [Suspect]
     Route: 041
     Dates: start: 20130522, end: 20130627
  4. AVASTIN [Suspect]
     Route: 041
     Dates: start: 20130724, end: 20131122
  5. AVASTIN [Suspect]
     Route: 041
     Dates: start: 20131203
  6. CAPECITABINE [Suspect]
     Indication: COLON CANCER
     Route: 065
     Dates: start: 20121222, end: 20130422
  7. FLUOROURACIL [Concomitant]
     Indication: COLON CANCER
     Route: 065
     Dates: start: 20120928, end: 20121208
  8. IRINOTECAN [Concomitant]
     Indication: COLON CANCER
     Route: 065
     Dates: start: 20120928, end: 20121208
  9. IRINOTECAN [Concomitant]
     Route: 065
     Dates: start: 20130522, end: 20130627
  10. IRINOTECAN [Concomitant]
     Route: 065
     Dates: start: 20130724, end: 20131122
  11. OXALIPLATIN [Concomitant]
     Indication: COLON CANCER
     Route: 065
     Dates: start: 20121222, end: 20130422
  12. OXALIPLATIN [Concomitant]
     Route: 065
     Dates: start: 20130522, end: 20130627
  13. ACETAMINOPHEN/OXYCODONE [Concomitant]
     Indication: PAIN
     Route: 048
     Dates: start: 20120801, end: 20131203
  14. FOLINIC ACID [Concomitant]
     Indication: COLON CANCER
     Route: 065
     Dates: start: 20120928, end: 20121208

REACTIONS (1)
  - Intestinal perforation [Recovering/Resolving]
